FAERS Safety Report 4355346-2 (Version None)
Quarter: 2004Q2

REPORT INFORMATION
  Report Type: 
  Country: None (occurrence: None)
  Receive Date: 20040504
  Receipt Date: 20040405
  Transmission Date: 20050107
  Serious: Yes (Other)
  Sender: FDA-Public Use
  Company Number: S04-ESP-01940-01

PATIENT
  Age: 82 Year
  Sex: Male
  Weight: 59 kg

DRUGS (1)
  1. AXURA (MEMANTINE HYDROCHLORIDE) [Suspect]
     Dosage: 20 MG QD PO
     Route: 048
     Dates: start: 20031104, end: 20031203

REACTIONS (1)
  - GRAND MAL CONVULSION [None]
